FAERS Safety Report 8266031 (Version 2)
Quarter: 2013Q1

REPORT INFORMATION
  Report Type: Spontaneous
  Country: GB (occurrence: None)
  Receive Date: 20111121
  Receipt Date: 20121220
  Transmission Date: 20140127
  Serious: Yes (Disabling, Other)
  Sender: FDA-Public Use
  Company Number: 2011AP002668

PATIENT
  Age: 79 Year
  Sex: Female

DRUGS (20)
  1. ALENDRONATE SODIUM [Suspect]
     Indication: PRODUCT USED FOR UNKNOWN INDICATION
     Dates: start: 20111026
  2. ASPIRIN (ACETYLSALICYLIC ACID) [Concomitant]
  3. ATORVASTATIN (ATORVASTATIN) [Concomitant]
  4. BISOPROLOL FUMARATE [Concomitant]
  5. ACETAMINOPHEN AND CODEINE [Concomitant]
  6. DOXAZOSIN MESYLATE [Concomitant]
  7. DURAPHAT (SODIUM FLUORIDE) [Concomitant]
  8. FUROSEMIDE (FUROSEMIDE) [Concomitant]
  9. HIBISCRUB (CHLORHEXIDINE GLUCONATE) [Concomitant]
  10. MATRIFEN (FENTANYL) [Concomitant]
  11. METHOTREXATE [Concomitant]
  12. MORPHINE SULPHATE (MORPHINE SULFATE) [Concomitant]
  13. NASEPTIN (NASEPTIN) [Concomitant]
  14. OMEPRAZOLE [Concomitant]
  15. PREDNISOLONE [Concomitant]
  16. QVAR [Concomitant]
  17. RAMIPRIL [Concomitant]
  18. SALBUTAMOL (SALBUTAMOL) [Concomitant]
  19. SODIUM CHLORIDE [Concomitant]
  20. VISCOPASTE (ZINC OXIDE) [Concomitant]

REACTIONS (2)
  - Osteonecrosis [None]
  - Osteonecrosis of jaw [None]
